FAERS Safety Report 4770849-4 (Version None)
Quarter: 2005Q3

REPORT INFORMATION
  Report Type: 
  Country: None (occurrence: None)
  Receive Date: 20050915
  Receipt Date: 20050906
  Transmission Date: 20060218
  Serious: Yes (Life-Threatening, Hospitalization)
  Sender: FDA-Public Use
  Company Number: SE-GLAXOSMITHKLINE-B0393861A

PATIENT
  Age: 67 Year
  Sex: Female

DRUGS (15)
  1. ZOVIRAX [Suspect]
     Indication: PROPHYLAXIS
     Dosage: 200MG SEE DOSAGE TEXT
     Route: 048
     Dates: start: 19950707, end: 19950714
  2. LAKTULOS [Concomitant]
     Route: 065
  3. UNSPECIFIED DRUG [Concomitant]
     Route: 065
  4. MALVITONA [Concomitant]
     Route: 048
  5. ORALOVITE [Concomitant]
     Route: 065
  6. PREDNISOLONE [Concomitant]
     Route: 065
  7. NATRIUMBIKARBONAT [Concomitant]
     Dosage: 1G UNKNOWN
     Route: 065
  8. FUROSEMIDE [Concomitant]
     Route: 065
  9. TIENAM [Concomitant]
     Route: 065
  10. VANCOCIN HCL [Concomitant]
     Dosage: 125MG UNKNOWN
     Route: 065
  11. SOBRIL [Concomitant]
     Dosage: 5MG UNKNOWN
     Route: 065
  12. DIFLUCAN [Concomitant]
     Dosage: 2MGML UNKNOWN
     Route: 050
  13. NEUPOGEN [Concomitant]
     Route: 065
  14. CALCIUM + D. VITAMIN [Concomitant]
     Route: 065
  15. LOSEC [Concomitant]
     Route: 065

REACTIONS (19)
  - AGGRESSION [None]
  - ALANINE AMINOTRANSFERASE INCREASED [None]
  - ANOREXIA [None]
  - ASPARTATE AMINOTRANSFERASE INCREASED [None]
  - ASTHENIA [None]
  - BILE OUTPUT [None]
  - CHILLS [None]
  - DEPRESSED MOOD [None]
  - FALL [None]
  - FATIGUE [None]
  - GAMMA-GLUTAMYLTRANSFERASE INCREASED [None]
  - LEUKOPENIA [None]
  - LIVER DISORDER [None]
  - MELAENA [None]
  - MENTAL DISORDER [None]
  - NAUSEA [None]
  - PYREXIA [None]
  - THROMBOCYTOPENIA [None]
  - VOMITING [None]
